FAERS Safety Report 4508279-2 (Version None)
Quarter: 2004Q4

REPORT INFORMATION
  Report Type: 
  Country: None (occurrence: None)
  Receive Date: 20041123
  Receipt Date: 20031215
  Transmission Date: 20050328
  Serious: No
  Sender: FDA-Public Use
  Company Number: US-GLAXOSMITHKLINE-A0443199A

PATIENT
  Age: 64 Year
  Sex: Female

DRUGS (10)
  1. WELLBUTRIN [Suspect]
     Indication: DEPRESSION
     Dosage: 150MG TWICE PER DAY
     Route: 048
     Dates: start: 20031001
  2. WELLBUTRIN XL [Suspect]
     Indication: ILL-DEFINED DISORDER
     Route: 048
  3. ATENOLOL [Concomitant]
  4. ALTACE [Concomitant]
  5. LAMICTAL [Concomitant]
  6. ZONEGRAN [Concomitant]
  7. FLEXERIL [Concomitant]
  8. OMEPRAZOLE [Concomitant]
  9. MOBIC [Concomitant]
  10. TRICOR [Concomitant]

REACTIONS (6)
  - DYSGEUSIA [None]
  - INFLUENZA LIKE ILLNESS [None]
  - INSOMNIA [None]
  - IRRITABILITY [None]
  - PAROSMIA [None]
  - TREMOR [None]
